FAERS Safety Report 14207444 (Version 1)
Quarter: 2017Q4

REPORT INFORMATION
  Report Type: Spontaneous
  Country: US (occurrence: US)
  Receive Date: 20171121
  Receipt Date: 20171121
  Transmission Date: 20180321
  Serious: No
  Sender: FDA-Public Use
  Company Number: US-JNJFOC-20171008705

PATIENT
  Age: 69 Year
  Sex: Male

DRUGS (13)
  1. IMBRUVICA [Suspect]
     Active Substance: IBRUTINIB
     Indication: B-CELL LYMPHOMA
     Route: 048
     Dates: start: 20150220
  2. PRED FORTE [Concomitant]
     Active Substance: PREDNISOLONE ACETATE
  3. IMBRUVICA [Suspect]
     Active Substance: IBRUTINIB
     Indication: B-CELL LYMPHOMA
     Route: 048
     Dates: start: 201705
  4. VIRAZOLE [Concomitant]
     Active Substance: RIBAVIRIN
  5. TRIMETHOPRIM. [Concomitant]
     Active Substance: TRIMETHOPRIM
  6. AMLODIPINE [Concomitant]
     Active Substance: AMLODIPINE BESYLATE
  7. POLYMYXIN B SULFATE. [Concomitant]
     Active Substance: POLYMYXIN B SULFATE
  8. ALPHAGAN P [Concomitant]
     Active Substance: BRIMONIDINE TARTRATE
  9. ACYCLOVIR                          /00587301/ [Concomitant]
     Active Substance: ACYCLOVIR
  10. VALTREX [Concomitant]
     Active Substance: VALACYCLOVIR HYDROCHLORIDE
  11. ACETAZOLAMIDE. [Concomitant]
     Active Substance: ACETAZOLAMIDE
  12. METRONIDAZOLE. [Concomitant]
     Active Substance: METRONIDAZOLE
  13. LUMIGAN [Concomitant]
     Active Substance: BIMATOPROST

REACTIONS (3)
  - Off label use [Unknown]
  - Product use in unapproved indication [Unknown]
  - Renal disorder [Not Recovered/Not Resolved]

NARRATIVE: CASE EVENT DATE: 20150220
